FAERS Safety Report 19423614 (Version 2)
Quarter: 2021Q3

REPORT INFORMATION
  Report Type: Spontaneous
  Country: US (occurrence: US)
  Receive Date: 20210616
  Receipt Date: 20210714
  Transmission Date: 20211014
  Serious: No
  Sender: FDA-Public Use
  Company Number: US-ASTRAZENECA-2021A488613

PATIENT
  Sex: Female
  Weight: 120.2 kg

DRUGS (1)
  1. SYMBICORT [Suspect]
     Active Substance: BUDESONIDE\FORMOTEROL FUMARATE DIHYDRATE
     Indication: ASTHMA
     Dosage: 160/4.5, 2 PUFFS, TWICE DAILY INHALATIONS
     Route: 055

REACTIONS (3)
  - Intentional device misuse [Unknown]
  - Dyspnoea [Unknown]
  - Device delivery system issue [Unknown]
